FAERS Safety Report 11438503 (Version 1)
Quarter: 2015Q3

REPORT INFORMATION
  Report Type: Spontaneous
  Country: US (occurrence: US)
  Receive Date: 20150901
  Receipt Date: 20150901
  Transmission Date: 20151125
  Serious: No
  Sender: FDA-Public Use
  Company Number: US-ROCHE-1053177

PATIENT
  Sex: Female

DRUGS (2)
  1. PEGASYS [Suspect]
     Active Substance: PEGINTERFERON ALFA-2A
     Indication: CHRONIC HEPATITIS C
     Route: 058
     Dates: start: 20120228, end: 20120814
  2. COPEGUS [Suspect]
     Active Substance: RIBAVIRIN
     Indication: CHRONIC HEPATITIS C
     Dosage: 1400 MG PER DAY IN DIVIDED DOSES OF 600/800
     Route: 048
     Dates: start: 20120228, end: 20120814

REACTIONS (8)
  - Hair texture abnormal [Unknown]
  - Alopecia [Unknown]
  - Dermatitis infected [Unknown]
  - Rash [Unknown]
  - Insomnia [Unknown]
  - Weight increased [Unknown]
  - Pruritus [Unknown]
  - Throat irritation [Unknown]
